FAERS Safety Report 15721710 (Version 2)
Quarter: 2019Q1

REPORT INFORMATION
  Report Type: Spontaneous
  Country: US (occurrence: US)
  Receive Date: 20181214
  Receipt Date: 20190125
  Transmission Date: 20190417
  Serious: Yes (Hospitalization)
  Sender: FDA-Public Use
  Company Number: US-ASTRAZENECA-2018SF61292

PATIENT
  Age: 4579 Week
  Sex: Female
  Weight: 72.6 kg

DRUGS (1)
  1. TUDORZA PRESSAIR [Suspect]
     Active Substance: ACLIDINIUM BROMIDE
     Indication: CHRONIC OBSTRUCTIVE PULMONARY DISEASE
     Route: 055

REACTIONS (5)
  - Product dose omission [Not Recovered/Not Resolved]
  - Device issue [Unknown]
  - Dyspnoea [Unknown]
  - Ovarian cancer stage III [Not Recovered/Not Resolved]
  - Intentional device misuse [Not Recovered/Not Resolved]
